APPROVED DRUG PRODUCT: TOFACITINIB CITRATE
Active Ingredient: TOFACITINIB CITRATE
Strength: EQ 11MG BASE
Dosage Form/Route: TABLET, EXTENDED RELEASE;ORAL
Application: A218668 | Product #001
Applicant: DEXCEL PHARMA TECHNOLOGIES LTD
Approved: Dec 16, 2024 | RLD: No | RS: No | Type: DISCN